FAERS Safety Report 8809696 (Version 1)
Quarter: 2012Q4

REPORT INFORMATION
  Report Type: 
  Country: US (occurrence: US)
  Receive Date: 20120926
  Receipt Date: 20120926
  Transmission Date: 20130627
  Serious: Yes (Hospitalization)
  Sender: FDA-Public Use
  Company Number: US-ASTRAZENECA-2012SE72696

PATIENT
  Age: 52 Year
  Sex: Male
  Weight: 77.1 kg

DRUGS (11)
  1. NEXIUM [Suspect]
     Indication: GASTROOESOPHAGEAL REFLUX DISEASE
     Route: 048
     Dates: start: 2002
  2. SYMBICORT PMDI [Suspect]
     Indication: ASTHMA
     Dosage: UNKNOWN STRENGTH DAILY
     Route: 055
     Dates: start: 2011
  3. CRESTOR [Suspect]
     Indication: HIGH DENSITY LIPOPROTEIN INCREASED
     Route: 048
     Dates: start: 2010
  4. CRESTOR [Suspect]
     Indication: LOW DENSITY LIPOPROTEIN INCREASED
     Route: 048
     Dates: start: 2010
  5. CRESTOR [Suspect]
     Indication: HIGH DENSITY LIPOPROTEIN INCREASED
     Route: 048
  6. CRESTOR [Suspect]
     Indication: LOW DENSITY LIPOPROTEIN INCREASED
     Route: 048
  7. CRESTOR [Suspect]
     Indication: HIGH DENSITY LIPOPROTEIN INCREASED
     Route: 048
  8. CRESTOR [Suspect]
     Indication: LOW DENSITY LIPOPROTEIN INCREASED
     Route: 048
  9. PRAVASTATIN [Suspect]
     Route: 065
  10. ZOCOR [Suspect]
     Route: 065
  11. AMBIEN [Concomitant]
     Indication: SLEEP DISORDER
     Route: 048
     Dates: start: 2002

REACTIONS (8)
  - Asthma [Unknown]
  - Hypersensitivity [Unknown]
  - Poor peripheral circulation [Not Recovered/Not Resolved]
  - Nasopharyngitis [Unknown]
  - Myalgia [Not Recovered/Not Resolved]
  - Muscular weakness [Not Recovered/Not Resolved]
  - Malaise [Not Recovered/Not Resolved]
  - Off label use [Unknown]
